FAERS Safety Report 13029395 (Version 2)
Quarter: 2017Q1

REPORT INFORMATION
  Report Type: Spontaneous
  Country: IT (occurrence: IT)
  Receive Date: 20161215
  Receipt Date: 20170102
  Transmission Date: 20170428
  Serious: Yes (Hospitalization)
  Sender: FDA-Public Use
  Company Number: IT-B.I. PHARMACEUTICALS,INC./RIDGEFIELD-2016-BI-084507

PATIENT
  Age: 85 Year
  Sex: Male

DRUGS (7)
  1. NOVORAPID [Concomitant]
     Active Substance: INSULIN ASPART
     Indication: DIABETES MELLITUS
     Dosage: LESS THAN 100
     Route: 058
  2. TIKLID [Concomitant]
     Active Substance: TICLOPIDINE HYDROCHLORIDE
     Indication: THROMBOSIS PROPHYLAXIS
     Route: 048
  3. OFEV [Suspect]
     Active Substance: NINTEDANIB
     Indication: IDIOPATHIC PULMONARY FIBROSIS
     Route: 048
     Dates: start: 20160801, end: 20161127
  4. RYTMONORM [Concomitant]
     Active Substance: PROPAFENONE
     Indication: ATRIAL FIBRILLATION
     Route: 048
  5. TRIATEC [Concomitant]
     Active Substance: RAMIPRIL
     Indication: HYPERTENSION
     Route: 048
  6. LANTUS [Concomitant]
     Active Substance: INSULIN GLARGINE
     Indication: DIABETES MELLITUS
     Route: 058
  7. CONGESCOR [Concomitant]
     Active Substance: BISOPROLOL
     Indication: ATRIAL FIBRILLATION
     Route: 048

REACTIONS (3)
  - Anaemia [Recovering/Resolving]
  - Melaena [Recovering/Resolving]
  - Gastroduodenal ulcer [Recovering/Resolving]

NARRATIVE: CASE EVENT DATE: 20161127
